FAERS Safety Report 4685599-2 (Version None)
Quarter: 2005Q2

REPORT INFORMATION
  Report Type: 
  Country: None (occurrence: None)
  Receive Date: 20050608
  Receipt Date: 20050531
  Transmission Date: 20051028
  Serious: Yes (Hospitalization)
  Sender: FDA-Public Use
  Company Number: 028-20785-04040712

PATIENT
  Age: 69 Year
  Sex: Male

DRUGS (13)
  1. THALOMID [Suspect]
     Indication: MULTIPLE MYELOMA
     Dosage: 200 MG, QHS , ORAL
     Route: 048
     Dates: start: 20020501
  2. THALOMID [Suspect]
  3. THALOMID [Suspect]
  4. THALOMID [Suspect]
  5. THALOMID [Suspect]
  6. PREDNISONE [Concomitant]
  7. DILAUDID [Concomitant]
  8. HYDROMORPH CONTIN (HYDROMORPHONE HYDROCHLORIDE) [Concomitant]
  9. AREDIA [Concomitant]
  10. QUININE SULFATE [Concomitant]
  11. LOSEC (OMEPRAZOLE) [Concomitant]
  12. IMMOVANE (ZOPICLONE) [Concomitant]
  13. EPREXX (EPOETIN ALFA) [Concomitant]

REACTIONS (14)
  - ASTHENIA [None]
  - BLOOD IMMUNOGLOBULIN G DECREASED [None]
  - CHOLECYSTITIS ACUTE [None]
  - CHOROID NEOPLASM [None]
  - DISEASE PROGRESSION [None]
  - GAMMOPATHY [None]
  - HYPERHIDROSIS [None]
  - MUSCLE SPASMS [None]
  - NIGHT SWEATS [None]
  - PLASMACYTOMA [None]
  - SACRAL PAIN [None]
  - SPINAL DISORDER [None]
  - VENA CAVA THROMBOSIS [None]
  - VISUAL ACUITY REDUCED [None]
